FAERS Safety Report 6072272-1 (Version None)
Quarter: 2009Q1

REPORT INFORMATION
  Report Type: 
  Country: None (occurrence: None)
  Receive Date: 20090206
  Receipt Date: 20090206
  Transmission Date: 20090719
  Serious: Yes (Life-Threatening, Hospitalization, Disabling)
  Sender: FDA-Public Use
  Company Number: None

PATIENT
  Age: 39 Year
  Sex: Male
  Weight: 90.7194 kg

DRUGS (2)
  1. SULFAMETHOXAZOLE AND TRIMETHOPRIM [Suspect]
     Indication: BACTERIAL INFECTION
     Dates: start: 20070117, end: 20070117
  2. SULFAMETHOXAZOLE AND TRIMETHOPRIM [Suspect]
     Indication: BACTERIAL INFECTION
     Dates: start: 20080408, end: 20080408

REACTIONS (4)
  - ARTHRALGIA [None]
  - DYSPNOEA [None]
  - OCULAR HYPERAEMIA [None]
  - PYREXIA [None]
